FAERS Safety Report 18291398 (Version 1)
Quarter: 2020Q3

REPORT INFORMATION
  Report Type: Other
  Country: CA (occurrence: CA)
  Receive Date: 20200922
  Receipt Date: 20200922
  Transmission Date: 20201103
  Serious: Yes (Hospitalization, Other)
  Sender: FDA-Public Use
  Company Number: CA-APOTEX-2020AP017996

PATIENT
  Age: 38 Year
  Sex: Male

DRUGS (8)
  1. CLOPIDOGREL [Suspect]
     Active Substance: CLOPIDOGREL BISULFATE
     Indication: ELECTROCARDIOGRAM ST SEGMENT ELEVATION
     Dosage: UNK
     Route: 065
  2. CLOPIDOGREL [Suspect]
     Active Substance: CLOPIDOGREL BISULFATE
     Indication: ARTERIOVENOUS FISTULA
  3. TENECTEPLASE [Suspect]
     Active Substance: TENECTEPLASE
     Indication: ELECTROCARDIOGRAM ST SEGMENT ELEVATION
     Dosage: UNK
     Route: 065
  4. ACETYLSALICYLIC ACID [Suspect]
     Active Substance: ASPIRIN
     Indication: ELECTROCARDIOGRAM ST SEGMENT ELEVATION
     Dosage: UNK
     Route: 065
  5. HEPARIN [Suspect]
     Active Substance: HEPARIN SODIUM
     Indication: ELECTROCARDIOGRAM ST SEGMENT ELEVATION
     Dosage: UNK
     Route: 042
  6. TENECTEPLASE [Suspect]
     Active Substance: TENECTEPLASE
     Indication: ARTERIOVENOUS FISTULA
  7. ACETYLSALICYLIC ACID [Suspect]
     Active Substance: ASPIRIN
     Indication: ARTERIOVENOUS FISTULA
  8. HEPARIN [Suspect]
     Active Substance: HEPARIN SODIUM
     Indication: ARTERIOVENOUS FISTULA

REACTIONS (5)
  - Aphasia [Recovered/Resolved]
  - Left ventricular dysfunction [Recovered/Resolved]
  - Ejection fraction decreased [Recovered/Resolved]
  - Hemiparesis [Recovered/Resolved]
  - Thrombosis [Recovered/Resolved]
